FAERS Safety Report 7814698-9 (Version None)
Quarter: 2011Q4

REPORT INFORMATION
  Report Type: 
  Country: None (occurrence: None)
  Receive Date: 20111014
  Receipt Date: 20110928
  Transmission Date: 20120403
  Serious: Yes (Other)
  Sender: FDA-Public Use
  Company Number: RU-ROCHE-1000752

PATIENT

DRUGS (3)
  1. METHYLPREDNISOLONE [Concomitant]
     Indication: JUVENILE ARTHRITIS
     Route: 065
  2. MABTHERA [Suspect]
     Indication: JUVENILE ARTHRITIS
     Route: 042
  3. METHOTREXATE [Concomitant]
     Route: 065

REACTIONS (2)
  - PNEUMONIA [None]
  - NEUTROPENIA [None]
